FAERS Safety Report 23117274 (Version 1)
Quarter: 2023Q4

REPORT INFORMATION
  Report Type: Spontaneous
  Country: US (occurrence: US)
  Receive Date: 20231027
  Receipt Date: 20231027
  Transmission Date: 20240109
  Serious: No
  Sender: FDA-Public Use
  Company Number: US-INCYTE CORPORATION-2023IN010900

PATIENT

DRUGS (1)
  1. OPZELURA [Suspect]
     Active Substance: RUXOLITINIB PHOSPHATE
     Indication: Dermatitis atopic
     Dosage: UNK (APPLIES WHEN HER SKIN STARTS TO BREAK OUT WHICH IS USUALLY AFTER 3 DAYS, DID NOT KNOW SHE COULD
     Route: 061

REACTIONS (1)
  - Inappropriate schedule of product administration [Unknown]
